FAERS Safety Report 25042635 (Version 4)
Quarter: 2025Q3

REPORT INFORMATION
  Report Type: Report from Study
  Country: EU (occurrence: EU)
  Receive Date: 20250305
  Receipt Date: 20250811
  Transmission Date: 20251020
  Serious: Yes (Other)
  Sender: TEVA
  Company Number: None

PATIENT
  Age: 2 Year
  Sex: Female

DRUGS (5)
  1. METHOTREXATE [Suspect]
     Active Substance: METHOTREXATE
     Indication: Acute lymphocytic leukaemia
     Route: 037
  2. CYTARABINE [Suspect]
     Active Substance: CYTARABINE
     Indication: Acute lymphocytic leukaemia
     Dosage: 40.80 MG 1V/DAY X 4 (FOR A TOTAL OF 4 BLOCKS OF 4 ADMINISTRATIONS)
     Route: 042
     Dates: start: 20250128, end: 20250131
  3. CYTARABINE [Suspect]
     Active Substance: CYTARABINE
     Indication: Acute lymphocytic leukaemia
     Dosage: 40.80 MG 1V/DAY X 4 (FOR A TOTAL OF 4 BLOCKS OF 4 ADMINISTRATIONS)
     Route: 042
     Dates: start: 20250122, end: 20250125
  4. PURINETHOL [Suspect]
     Active Substance: MERCAPTOPURINE
     Indication: Acute lymphocytic leukaemia
     Route: 048
     Dates: start: 20250126, end: 20250126
  5. PURINETHOL [Suspect]
     Active Substance: MERCAPTOPURINE
     Indication: Acute lymphocytic leukaemia
     Dosage: FROM 22/01 1/2 TABLET FOR 4 DAYS + 1 TABLET ON THE 5TH DAY
     Route: 048
     Dates: start: 20250122, end: 20250125

REACTIONS (2)
  - Pancytopenia [Recovered/Resolved]
  - Alopecia [Recovered/Resolved]

NARRATIVE: CASE EVENT DATE: 20241201
